FAERS Safety Report 8564215-3 (Version None)
Quarter: 2012Q3

REPORT INFORMATION
  Report Type: 
  Country: None (occurrence: None)
  Receive Date: 20120723
  Receipt Date: 20120711
  Transmission Date: 20120928
  Serious: Yes (Hospitalization, Other)
  Sender: FDA-Public Use
  Company Number: 2012PL050036

PATIENT
  Age: 78 Year
  Sex: Female

DRUGS (3)
  1. GABAPENTIN [Suspect]
     Indication: NEURALGIA
     Dosage: 600 MG; BID; 800 MG; Q8H; 800 MG; Q8H
  2. TRAZODONE HYDROCHLORIDE [Concomitant]
  3. ESCITALOPRAM [Concomitant]

REACTIONS (12)
  - OFF LABEL USE [None]
  - URINARY TRACT INFECTION [None]
  - AGITATION [None]
  - MINI MENTAL STATUS EXAMINATION ABNORMAL [None]
  - ELECTROENCEPHALOGRAM ABNORMAL [None]
  - STATUS EPILEPTICUS [None]
  - DELIRIUM [None]
  - APHASIA [None]
  - CONFUSIONAL STATE [None]
  - COMPLEX PARTIAL SEIZURES [None]
  - MENTAL STATUS CHANGES [None]
  - DYSPHORIA [None]
